FAERS Safety Report 24368921 (Version 1)
Quarter: 2024Q3

REPORT INFORMATION
  Report Type: Spontaneous
  Country: US (occurrence: US)
  Receive Date: 20240927
  Receipt Date: 20240927
  Transmission Date: 20241017
  Serious: No
  Sender: ROCHE
  Company Number: US-ROCHE-10000089345

PATIENT
  Age: 64 Year
  Sex: Female

DRUGS (5)
  1. MYCOPHENOLATE MOFETIL [Suspect]
     Active Substance: MYCOPHENOLATE MOFETIL
     Indication: Product used for unknown indication
     Route: 065
  2. AMBRISENTAN [Suspect]
     Active Substance: AMBRISENTAN
     Indication: Pulmonary arterial hypertension
     Route: 065
     Dates: start: 201906
  3. TREPROSTINIL [Suspect]
     Active Substance: TREPROSTINIL
     Indication: Pulmonary arterial hypertension
     Route: 065
     Dates: start: 202306
  4. OFEV [Suspect]
     Active Substance: NINTEDANIB
     Indication: Interstitial lung disease
     Route: 065
     Dates: start: 202402
  5. SILDENAFIL CITRATE [Suspect]
     Active Substance: SILDENAFIL CITRATE
     Indication: Product used for unknown indication
     Route: 065

REACTIONS (10)
  - Dyspnoea [Unknown]
  - Nausea [Unknown]
  - Headache [Unknown]
  - Cough [Not Recovered/Not Resolved]
  - Injection site erythema [Unknown]
  - Sputum increased [Unknown]
  - Asthenia [Unknown]
  - Oropharyngeal pain [Unknown]
  - Dyspnoea exertional [Unknown]
  - Injection site pruritus [Unknown]
